FAERS Safety Report 19394148 (Version 2)
Quarter: 2022Q1

REPORT INFORMATION
  Report Type: Spontaneous
  Country: US (occurrence: US)
  Receive Date: 20210609
  Receipt Date: 20220125
  Transmission Date: 20220423
  Serious: Yes (Other)
  Sender: FDA-Public Use
  Company Number: US-GILEAD-2021-0534824

PATIENT
  Age: 57 Year
  Sex: Male

DRUGS (34)
  1. VIREAD [Suspect]
     Active Substance: TENOFOVIR DISOPROXIL FUMARATE
     Indication: HIV infection
     Dosage: UNK
     Route: 048
     Dates: start: 2001
  2. VIREAD [Suspect]
     Active Substance: TENOFOVIR DISOPROXIL FUMARATE
     Dosage: UNK
     Route: 048
     Dates: start: 2012, end: 2018
  3. DESCOVY [Concomitant]
     Active Substance: EMTRICITABINE\TENOFOVIR ALAFENAMIDE FUMARATE
  4. COMBIVIR [Concomitant]
     Active Substance: LAMIVUDINE\ZIDOVUDINE
  5. CRIXIVAN [Concomitant]
     Active Substance: INDINAVIR SULFATE
  6. EPIVIR [Concomitant]
     Active Substance: LAMIVUDINE
  7. EPZICOM [Concomitant]
     Active Substance: ABACAVIR SULFATE\LAMIVUDINE
  8. KALETRA [Concomitant]
     Active Substance: LOPINAVIR\RITONAVIR
  9. NORVIR [Concomitant]
     Active Substance: RITONAVIR
  10. RETROVIR [Concomitant]
     Active Substance: ZIDOVUDINE
  11. REYATAZ [Concomitant]
     Active Substance: ATAZANAVIR SULFATE
  12. SUSTIVA [Concomitant]
     Active Substance: EFAVIRENZ
  13. TIVICAY [Concomitant]
     Active Substance: DOLUTEGRAVIR SODIUM
  14. VIDEX EC [Concomitant]
     Active Substance: DIDANOSINE
  15. ZERIT [Concomitant]
     Active Substance: STAVUDINE
  16. ABACAVIR [Concomitant]
     Active Substance: ABACAVIR
  17. BESIVANCE [Concomitant]
     Active Substance: BESIFLOXACIN
  18. DICLOFENAC [Concomitant]
     Active Substance: DICLOFENAC
  19. DOVATO [Concomitant]
     Active Substance: DOLUTEGRAVIR SODIUM\LAMIVUDINE
  20. DOXYCYCLINE [Concomitant]
     Active Substance: DOXYCYCLINE
  21. DUREZOL [Concomitant]
     Active Substance: DIFLUPREDNATE
  22. ESCITALOPRAM [Concomitant]
     Active Substance: ESCITALOPRAM OXALATE
  23. GABAPENTIN [Concomitant]
     Active Substance: GABAPENTIN
  24. HYDROCODONE [Concomitant]
     Active Substance: HYDROCODONE
  25. IBUPROFEN [Concomitant]
     Active Substance: IBUPROFEN
  26. ILEVRO [Concomitant]
     Active Substance: NEPAFENAC
  27. LISINOPRIL [Concomitant]
     Active Substance: LISINOPRIL
  28. LORATADINE [Concomitant]
     Active Substance: LORATADINE
  29. MELOXICAM [Concomitant]
     Active Substance: MELOXICAM
  30. OXYCODONE [Concomitant]
     Active Substance: OXYCODONE
  31. PREDNISONE [Concomitant]
     Active Substance: PREDNISONE
  32. QUETIAPINE [Concomitant]
     Active Substance: QUETIAPINE
  33. ROSUVASTATIN [Concomitant]
     Active Substance: ROSUVASTATIN
  34. TAMSULOSIN [Concomitant]
     Active Substance: TAMSULOSIN

REACTIONS (11)
  - Osteoporosis [Unknown]
  - Bone demineralisation [Unknown]
  - Emotional distress [Not Recovered/Not Resolved]
  - Anxiety [Not Recovered/Not Resolved]
  - Anhedonia [Not Recovered/Not Resolved]
  - Pain [Not Recovered/Not Resolved]
  - Bone density decreased [Not Recovered/Not Resolved]
  - Osteoarthritis [Unknown]
  - Dysstasia [Not Recovered/Not Resolved]
  - Gait disturbance [Not Recovered/Not Resolved]
  - Adverse event [Unknown]

NARRATIVE: CASE EVENT DATE: 20200401
